FAERS Safety Report 4346567-3 (Version None)
Quarter: 2004Q2

REPORT INFORMATION
  Report Type: 
  Country: None (occurrence: None)
  Receive Date: 20040426
  Receipt Date: 20040219
  Transmission Date: 20050107
  Serious: Yes (Other)
  Sender: FDA-Public Use
  Company Number: US-BRISTOL-MYERS SQUIBB COMPANY-12510616

PATIENT
  Age: 5 Decade
  Sex: Female

DRUGS (2)
  1. CARBOPLATIN [Suspect]
     Indication: NON-SMALL CELL LUNG CANCER
  2. TAXOL [Suspect]
     Indication: NON-SMALL CELL LUNG CANCER

REACTIONS (1)
  - NON-SMALL CELL LUNG CANCER [None]
